FAERS Safety Report 14839396 (Version 1)
Quarter: 2018Q2

REPORT INFORMATION
  Report Type: Report from Study
  Country: None (occurrence: DE)
  Receive Date: 20180502
  Receipt Date: 20180502
  Transmission Date: 20180711
  Serious: Yes (Hospitalization)
  Sender: FDA-Public Use
  Company Number: DE-ABBVIE-18K-062-2339616-00

PATIENT
  Age: 78 Year
  Sex: Female

DRUGS (1)
  1. DUODOPA [Suspect]
     Active Substance: CARBIDOPA\LEVODOPA
     Indication: PARKINSON^S DISEASE
     Dosage: NOT YET  DETERMINED
     Route: 050
     Dates: start: 20180412

REACTIONS (2)
  - Post procedural complication [Unknown]
  - Peritonitis [Unknown]

NARRATIVE: CASE EVENT DATE: 201804
